FAERS Safety Report 7779780-3 (Version None)
Quarter: 2011Q3

REPORT INFORMATION
  Report Type: 
  Country: None (occurrence: None)
  Receive Date: 20110927
  Receipt Date: 20110915
  Transmission Date: 20111222
  Serious: Yes (Other)
  Sender: FDA-Public Use
  Company Number: CA-JNJFOC-20110907514

PATIENT
  Sex: Female
  Weight: 57 kg

DRUGS (3)
  1. IMURAN [Concomitant]
     Route: 048
  2. BIRTH CONTROL PILL [Concomitant]
     Route: 065
  3. REMICADE [Suspect]
     Indication: CROHN'S DISEASE
     Dosage: ONCE IN 6 TO 7 WEEKS
     Route: 042
     Dates: start: 20070501

REACTIONS (4)
  - RESPIRATORY TRACT IRRITATION [None]
  - CHEST DISCOMFORT [None]
  - HYPERVENTILATION [None]
  - DYSPNOEA [None]
